FAERS Safety Report 8010328-4 (Version None)
Quarter: 2011Q4

REPORT INFORMATION
  Report Type: 
  Country: None (occurrence: None)
  Receive Date: 20111228
  Receipt Date: 20111215
  Transmission Date: 20120403
  Serious: Yes (Hospitalization)
  Sender: FDA-Public Use
  Company Number: DE-ELI_LILLY_AND_COMPANY-DE201112004180

PATIENT
  Age: 63 Year
  Sex: Male

DRUGS (4)
  1. CALCIUM ACETATE [Concomitant]
  2. VITAMIN D [Concomitant]
  3. FORTEO [Suspect]
     Indication: OSTEOPOROSIS
     Dosage: UNK, QD
     Route: 058
  4. CORTISONE ACETATE [Concomitant]

REACTIONS (4)
  - WHITE BLOOD CELL DISORDER [None]
  - HAEMOGLOBIN ABNORMAL [None]
  - WEIGHT DECREASED [None]
  - BLOOD TEST ABNORMAL [None]
